FAERS Safety Report 6520837-2 (Version None)
Quarter: 2009Q4

REPORT INFORMATION
  Report Type: 
  Country: None (occurrence: None)
  Receive Date: 20091229
  Receipt Date: 20091217
  Transmission Date: 20100525
  Serious: Yes (Other)
  Sender: FDA-Public Use
  Company Number: US-ELI_LILLY_AND_COMPANY-US200912004181

PATIENT
  Sex: Female

DRUGS (3)
  1. STRATTERA [Suspect]
     Dosage: 50 MG, DAILY (1/D)
     Route: 065
     Dates: start: 20090701
  2. ZONISAMIDE [Concomitant]
     Dosage: 100 MG, DAILY (1/D)
     Route: 065
  3. DIAZEPAM [Concomitant]
     Dosage: 5 MG, UNKNOWN
     Route: 065

REACTIONS (2)
  - CONVULSION [None]
  - RESPIRATORY ARREST [None]
